FAERS Safety Report 20316516 (Version 2)
Quarter: 2022Q1

REPORT INFORMATION
  Report Type: Spontaneous
  Country: NL (occurrence: NL)
  Receive Date: 20220110
  Receipt Date: 20220118
  Transmission Date: 20220423
  Serious: Yes (Hospitalization, Other)
  Sender: FDA-Public Use
  Company Number: None

PATIENT
  Sex: Male

DRUGS (7)
  1. OLANZAPINE [Suspect]
     Active Substance: OLANZAPINE
     Indication: Nausea
     Dosage: 5 MILLIGRAM, BID, 2 X PER DAY 1 PIECE
     Dates: start: 20211215, end: 20211221
  2. CAPECITABINE [Concomitant]
     Active Substance: CAPECITABINE
     Dosage: 500 MILLIGRAM, FILM-COATED TABLET, 500 MG (MILLIGRAM)
  3. PERINDOPRIL [Concomitant]
     Active Substance: PERINDOPRIL
     Dosage: 4 MILLIGRAM, TABLET, 4 MG (MILLIGRAM)
  4. SPIRONOLACTONE [Concomitant]
     Active Substance: SPIRONOLACTONE
     Dosage: 12.5 MILLIGRAM, TABLET, 12.5 MG (MILLIGRAM)
  5. RIVAROXABAN [Concomitant]
     Active Substance: RIVAROXABAN
     Dosage: 20 MILLIGRAM,TABLET, 20 MG (MILLIGRAM)
  6. Metoprolol MGA [Concomitant]
     Dosage: 50 MILLIGRAM, MODIFIED-RELEASE TABLET, 50 MG (MILLIGRAMS)
  7. ROSUVASTATIN [Concomitant]
     Active Substance: ROSUVASTATIN
     Dosage: 20 MILLIGRAM,TABLET, 20 MG (MILLIGRAM)

REACTIONS (4)
  - Delirium [Recovered/Resolved]
  - Renal impairment [Recovered/Resolved]
  - Urinary retention [Recovered/Resolved]
  - Off label use [Unknown]
